FAERS Safety Report 16083938 (Version 2)
Quarter: 2019Q2

REPORT INFORMATION
  Report Type: Spontaneous
  Country: ES (occurrence: ES)
  Receive Date: 20190318
  Receipt Date: 20190405
  Transmission Date: 20190711
  Serious: Yes (Hospitalization, Other)
  Sender: FDA-Public Use
  Company Number: ES-SA-2019SA068981

PATIENT
  Age: 62 Year
  Sex: Female

DRUGS (3)
  1. LEFLUNOMIDE. [Suspect]
     Active Substance: LEFLUNOMIDE
     Indication: RHEUMATOID ARTHRITIS
     Route: 065
  2. CALCIUM [Concomitant]
     Active Substance: CALCIUM
     Indication: RHEUMATOID ARTHRITIS
     Route: 065
  3. PREDNISONE. [Suspect]
     Active Substance: PREDNISONE
     Indication: RHEUMATOID ARTHRITIS
     Dosage: 2.5 MG, QD
     Route: 048

REACTIONS (12)
  - Paraesthesia [Recovering/Resolving]
  - Dysphagia [Recovering/Resolving]
  - Guillain-Barre syndrome [Recovering/Resolving]
  - Asthenia [Recovering/Resolving]
  - Diplegia [Recovering/Resolving]
  - Back pain [Recovering/Resolving]
  - Apathy [Recovering/Resolving]
  - Decreased appetite [Recovering/Resolving]
  - Dyslalia [Recovering/Resolving]
  - Axonal neuropathy [Recovering/Resolving]
  - Walking disability [Recovering/Resolving]
  - Quadriparesis [Recovering/Resolving]
